FAERS Safety Report 5775131-4 (Version None)
Quarter: 2008Q2

REPORT INFORMATION
  Report Type: 
  Country: None (occurrence: None)
  Receive Date: 20080616
  Receipt Date: 20080616
  Transmission Date: 20081010
  Serious: Yes (Life-Threatening)
  Sender: FDA-Public Use
  Company Number: None

PATIENT
  Age: 35 Year
  Sex: Male
  Weight: 88.4514 kg

DRUGS (2)
  1. SINGULAIR [Suspect]
     Indication: ASTHMA
     Dosage: ONCE DAILY
     Dates: start: 20080315, end: 20080613
  2. SINGULAIR [Suspect]
     Indication: SEASONAL ALLERGY
     Dosage: ONCE DAILY
     Dates: start: 20080315, end: 20080613

REACTIONS (3)
  - DEPRESSION [None]
  - MOOD SWINGS [None]
  - SUICIDAL IDEATION [None]
